FAERS Safety Report 8499950-9 (Version None)
Quarter: 2012Q3

REPORT INFORMATION
  Report Type: 
  Country: None (occurrence: None)
  Receive Date: 20120710
  Receipt Date: 20120703
  Transmission Date: 20120928
  Serious: Yes (Hospitalization, Other)
  Sender: FDA-Public Use
  Company Number: US-BAYER-2011-045496

PATIENT
  Age: 49 Year
  Sex: Female

DRUGS (16)
  1. CLOBETASOL PROPIONATE [Concomitant]
     Dosage: 0.05 UNK, UNK
  2. TRAZODONE HCL [Concomitant]
     Dosage: 150 MG, DAILY
     Route: 048
  3. YASMIN [Suspect]
     Indication: PRODUCT USED FOR UNKNOWN INDICATION
     Dosage: UNK
     Dates: start: 20081001
  4. GEODON [Concomitant]
     Dosage: 40 MG, BID
     Route: 048
  5. KLONOPIN [Concomitant]
     Dosage: 0.5 MG, UNK
     Dates: start: 20090608
  6. VISTARIL [Concomitant]
     Dosage: 50 MG, PRN
     Route: 048
  7. NEURONTIN [Concomitant]
     Dosage: 300 MG, TID
     Route: 048
  8. CELEXA [Concomitant]
     Dosage: 40 MG, BID
     Route: 048
  9. BUPROPION HYDROCHLORIDE [Concomitant]
     Dosage: 150 MG, UNK
     Dates: start: 20090608
  10. SERTRALINE HYDROCHLORIDE [Concomitant]
     Dosage: 50 MG, UNK
     Dates: start: 20090714
  11. LITHIUM CARBONATE [Concomitant]
     Dosage: 600 MG, HS
  12. DROSPIRENONE AND ETHINYL ESTRADIOL [Suspect]
     Indication: PRODUCT USED FOR UNKNOWN INDICATION
     Dosage: UNK
     Dates: start: 20081001
  13. EXCEDRIN P.M. [DIPHENHYDRAMINE CITRATE,PARACETAMOL] [Concomitant]
     Dosage: 100 MG, UNK
  14. CYMBALTA [Concomitant]
     Dosage: 60 UNK, UNK
     Dates: start: 20090619
  15. YAZ [Suspect]
     Indication: PRODUCT USED FOR UNKNOWN INDICATION
     Dosage: UNK
     Dates: start: 20081001
  16. ASPIRIN [Concomitant]
     Dosage: 325 MG, DAILY

REACTIONS (6)
  - PAIN [None]
  - INJURY [None]
  - ANXIETY [None]
  - ANHEDONIA [None]
  - PULMONARY EMBOLISM [None]
  - DEEP VEIN THROMBOSIS [None]
